FAERS Safety Report 9842998 (Version 1)
Quarter: 2013Q4

REPORT INFORMATION
  Report Type: Spontaneous
  Country: US (occurrence: None)
  Receive Date: 20131223
  Receipt Date: 20131223
  Transmission Date: 20140711
  Serious: No
  Sender: FDA-Public Use
  Company Number: 219237LEO

PATIENT
  Age: 38 Year
  Sex: Female

DRUGS (1)
  1. PICATO (0.015 %, GEL) [Suspect]
     Indication: PRECANCEROUS SKIN LESION
     Route: 061
     Dates: start: 20120923, end: 20120924

REACTIONS (10)
  - Visual impairment [None]
  - Application site burn [None]
  - Application site erythema [None]
  - Headache [None]
  - Dry skin [None]
  - Pain [None]
  - Application site vesicles [None]
  - Swelling face [None]
  - Application site swelling [None]
  - Incorrect drug administration duration [None]
